FAERS Safety Report 9633854 (Version 3)
Quarter: 2014Q3

REPORT INFORMATION
  Report Type: Spontaneous
  Country: US (occurrence: US)
  Receive Date: 20131021
  Receipt Date: 20140710
  Transmission Date: 20150326
  Serious: Yes (Hospitalization)
  Sender: FDA-Public Use
  Company Number: US-JNJFOC-20131006135

PATIENT

DRUGS (3)
  1. INVEGA [Suspect]
     Active Substance: PALIPERIDONE
     Indication: ADVERSE EVENT
     Route: 048
  2. INVEGA [Suspect]
     Active Substance: PALIPERIDONE
     Indication: SUICIDE ATTEMPT
     Route: 048
  3. INVEGA [Suspect]
     Active Substance: PALIPERIDONE
     Indication: MEDICATION ERROR
     Route: 048

REACTIONS (19)
  - Conduction disorder [Unknown]
  - Electrocardiogram change [Unknown]
  - Dizziness [Unknown]
  - Irritability [Unknown]
  - Tachycardia [Unknown]
  - Somnolence [Unknown]
  - Respiratory depression [Unknown]
  - Convulsion [Unknown]
  - Muscle rigidity [Unknown]
  - Agitation [Unknown]
  - Confusional state [Unknown]
  - Coma [Unknown]
  - Toxicity to various agents [Unknown]
  - Hypertension [Unknown]
  - Hypotension [Unknown]
  - Dystonia [Unknown]
  - Lethargy [Unknown]
  - Tremor [Unknown]
  - Vertigo [Unknown]
